FAERS Safety Report 4952898-6 (Version None)
Quarter: 2006Q1

REPORT INFORMATION
  Report Type: 
  Country: None (occurrence: None)
  Receive Date: 20060324
  Receipt Date: 20060315
  Transmission Date: 20060701
  Serious: Yes (Other)
  Sender: FDA-Public Use
  Company Number: PHBS2006JP04135

PATIENT
  Sex: Female

DRUGS (1)
  1. AREDIA [Suspect]
     Route: 065
     Dates: start: 20050201

REACTIONS (1)
  - OSTEONECROSIS [None]
